FAERS Safety Report 17139250 (Version 1)
Quarter: 2019Q4

REPORT INFORMATION
  Report Type: Spontaneous
  Country: US (occurrence: US)
  Receive Date: 20191210
  Receipt Date: 20191210
  Transmission Date: 20200122
  Serious: No
  Sender: FDA-Public Use
  Company Number: None

PATIENT
  Age: 41 Year
  Sex: Female
  Weight: 117.9 kg

DRUGS (1)
  1. VYVANSE [Suspect]
     Active Substance: LISDEXAMFETAMINE DIMESYLATE
     Indication: WEIGHT DECREASED
     Route: 048
     Dates: start: 20191119, end: 20191210

REACTIONS (4)
  - Discomfort [None]
  - Rectal fissure [None]
  - Constipation [None]
  - Alopecia [None]

NARRATIVE: CASE EVENT DATE: 20191209
